FAERS Safety Report 5780949-8 (Version None)
Quarter: 2008Q2

REPORT INFORMATION
  Report Type: 
  Country: None (occurrence: None)
  Receive Date: 20080620
  Receipt Date: 20080608
  Transmission Date: 20081010
  Serious: Yes (Other)
  Sender: FDA-Public Use
  Company Number: US-PFIZER INC-2008048430

PATIENT
  Sex: Female
  Weight: 136.36 kg

DRUGS (3)
  1. CHANTIX [Suspect]
  2. VITAMINS [Concomitant]
  3. ANTIOBESITY PREPARATIONS, EXCL DIET PRODUCTS [Concomitant]

REACTIONS (2)
  - ANGER [None]
  - HALLUCINATION [None]
